FAERS Safety Report 17671197 (Version 2)
Quarter: 2020Q2

REPORT INFORMATION
  Report Type: Spontaneous
  Country: FR (occurrence: FR)
  Receive Date: 20200415
  Receipt Date: 20200430
  Transmission Date: 20200713
  Serious: Yes (Other)
  Sender: FDA-Public Use
  Company Number: NVSC2020FR100305

PATIENT
  Age: 68 Year
  Sex: Male
  Weight: 80.5 kg

DRUGS (12)
  1. CEFTAZIDIME. [Suspect]
     Active Substance: CEFTAZIDIME
     Indication: INFECTION
     Dosage: 6 G, QD
     Route: 042
     Dates: start: 20190420, end: 20190515
  2. ADIAZINE [Concomitant]
     Active Substance: SULFADIAZINE
     Indication: TOXOPLASMOSIS
     Dosage: 8 G, QD
     Route: 048
     Dates: start: 20190522, end: 20190607
  3. AMOXICILLIN. [Suspect]
     Active Substance: AMOXICILLIN
     Indication: ANTIBIOTIC THERAPY
     Dosage: 2 G, 12 HOURS
     Route: 048
     Dates: start: 20190517, end: 20190602
  4. MALOCIDE [Concomitant]
     Indication: TOXOPLASMOSIS
     Dosage: 50 MG, QD
     Route: 048
     Dates: start: 20190522, end: 20190607
  5. SANDIMMUN [Suspect]
     Active Substance: CYCLOSPORINE
     Indication: PROPHYLAXIS AGAINST TRANSPLANT REJECTION
     Dosage: 240 MG, QD
     Route: 042
     Dates: start: 20190424
  6. SANDIMMUN [Suspect]
     Active Substance: CYCLOSPORINE
     Dosage: 120 MG, QD
     Route: 042
     Dates: end: 20190522
  7. VANCOMYCIN [Suspect]
     Active Substance: VANCOMYCIN
     Indication: INFECTION
     Dosage: 2.5 G, QD
     Route: 042
     Dates: start: 20190422, end: 20190426
  8. AMIKACIN. [Suspect]
     Active Substance: AMIKACIN
     Indication: INFECTION
     Dosage: 1 G, QD
     Route: 042
     Dates: start: 20190419, end: 20190422
  9. CELLCEPT [Suspect]
     Active Substance: MYCOPHENOLATE MOFETIL\MYCOPHENOLATE MOFETIL HYDROCHLORIDE
     Indication: PROPHYLAXIS AGAINST TRANSPLANT REJECTION
     Dosage: 1 G, BID (EVERY 12 HRS)
     Route: 042
     Dates: start: 20190424, end: 20190522
  10. TENOFOVIR DISOPROXIL [Suspect]
     Active Substance: TENOFOVIR DISOPROXIL
     Indication: PROPHYLAXIS
     Dosage: 245 MG, QD
     Route: 048
     Dates: start: 20190419, end: 20190522
  11. TENOFOVIR DISOPROXIL [Suspect]
     Active Substance: TENOFOVIR DISOPROXIL
     Indication: CHRONIC HEPATITIS B
  12. ACICLOVIR [Suspect]
     Active Substance: ACYCLOVIR
     Indication: ORAL HERPES
     Dosage: 700 MG, Q8H
     Route: 042
     Dates: start: 20190514, end: 20190522

REACTIONS (2)
  - Renal failure [Recovered/Resolved]
  - Acute kidney injury [Recovering/Resolving]

NARRATIVE: CASE EVENT DATE: 20190426
